FAERS Safety Report 11977083 (Version 4)
Quarter: 2017Q1

REPORT INFORMATION
  Report Type: Spontaneous
  Country: FR (occurrence: FR)
  Receive Date: 20160129
  Receipt Date: 20170111
  Transmission Date: 20170428
  Serious: Yes (Other)
  Sender: FDA-Public Use
  Company Number: FR-GLAXOSMITHKLINE-FR2016GSK011015

PATIENT
  Age: 72 Year
  Sex: Male

DRUGS (1)
  1. VALACICLOVIR BIOGARAN [Suspect]
     Active Substance: VALACYCLOVIR HYDROCHLORIDE
     Indication: HERPES VIRUS INFECTION
     Dosage: 1 DF, QD
     Route: 048
     Dates: start: 201601, end: 201608

REACTIONS (3)
  - Anaemia [Unknown]
  - Pruritus generalised [Recovering/Resolving]
  - Acute kidney injury [Recovered/Resolved]

NARRATIVE: CASE EVENT DATE: 201601
